FAERS Safety Report 24107539 (Version 1)
Quarter: 2024Q3

REPORT INFORMATION
  Report Type: Spontaneous
  Country: CA (occurrence: CA)
  Receive Date: 20240718
  Receipt Date: 20240718
  Transmission Date: 20241016
  Serious: Yes (Death)
  Sender: NOVO NORDISK
  Company Number: None

PATIENT
  Age: 37 Year
  Sex: Male

DRUGS (1)
  1. OZEMPIC [Suspect]
     Active Substance: SEMAGLUTIDE
     Indication: Weight control
     Dosage: 0.5 MG, QW (THERAPY DURATION: 60.0 DAYS)
     Route: 058

REACTIONS (4)
  - Completed suicide [Fatal]
  - Concomitant disease aggravated [Fatal]
  - Depression [Fatal]
  - Product use in unapproved indication [Unknown]
